FAERS Safety Report 22635235 (Version 3)
Quarter: 2023Q4

REPORT INFORMATION
  Report Type: Spontaneous
  Country: US (occurrence: US)
  Receive Date: 20230623
  Receipt Date: 20231205
  Transmission Date: 20240109
  Serious: Yes (Other)
  Sender: FDA-Public Use
  Company Number: US-PFIZER INC-PV202300104259

PATIENT
  Age: 82 Year
  Sex: Male

DRUGS (3)
  1. MEKTOVI [Suspect]
     Active Substance: BINIMETINIB
     Dosage: 1 TABLET TWO TIMES DAILY
  2. BRAFTOVI [Suspect]
     Active Substance: ENCORAFENIB
     Dosage: UNK (TAKING TWICE THE DOSE)
  3. BRAFTOVI [Suspect]
     Active Substance: ENCORAFENIB
     Dosage: 3 CAPS 75 MG, DAILY

REACTIONS (2)
  - Cardiac disorder [Unknown]
  - Neoplasm recurrence [Recovering/Resolving]
